FAERS Safety Report 24904559 (Version 1)
Quarter: 2025Q1

REPORT INFORMATION
  Report Type: Spontaneous
  Country: US (occurrence: US)
  Receive Date: 20250130
  Receipt Date: 20250130
  Transmission Date: 20250408
  Serious: No
  Sender: Tarsus Pharmaceuticals
  Company Number: US-TARSUS PHARMACEUTICALS-TSP-US-2024-000616

PATIENT
  Age: 77 Year
  Sex: Female
  Weight: 61.224 kg

DRUGS (4)
  1. XDEMVY [Suspect]
     Active Substance: LOTILANER
     Indication: Demodex blepharitis
     Dosage: 1 DROP, BID
     Route: 047
     Dates: start: 20241212, end: 20241213
  2. MIEBO [Concomitant]
     Active Substance: PERFLUOROHEXYLOCTANE
     Indication: Product used for unknown indication
     Route: 047
  3. SYNTHROID [Concomitant]
     Active Substance: LEVOTHYROXINE SODIUM
     Indication: Product used for unknown indication
     Route: 065
  4. IMIPRAMINE [Concomitant]
     Active Substance: IMIPRAMINE
     Indication: Product used for unknown indication
     Route: 065

REACTIONS (5)
  - Drug hypersensitivity [Recovering/Resolving]
  - Urticaria [Recovering/Resolving]
  - Eye irritation [Recovering/Resolving]
  - Erythema of eyelid [Recovering/Resolving]
  - Swelling of eyelid [Recovering/Resolving]

NARRATIVE: CASE EVENT DATE: 20241213
